FAERS Safety Report 25504701 (Version 1)
Quarter: 2025Q3

REPORT INFORMATION
  Report Type: Spontaneous
  Country: US (occurrence: None)
  Receive Date: 20250702
  Receipt Date: 20250702
  Transmission Date: 20251020
  Serious: No
  Sender: FDA-CTU
  Company Number: None

PATIENT
  Age: 29 Year
  Sex: Female

DRUGS (3)
  1. VITAMINS [Suspect]
     Active Substance: VITAMINS
     Dates: start: 20250613
  2. STOOL SOFTENER (DOCUSATE) [Suspect]
     Active Substance: DOCUSATE
     Dates: start: 20250613
  3. IBUPROFEN [Suspect]
     Active Substance: IBUPROFEN
     Dates: start: 20250613

REACTIONS (3)
  - Exposure during pregnancy [None]
  - Maternal drugs affecting foetus [None]
  - Foetal growth restriction [None]

NARRATIVE: CASE EVENT DATE: 20250411
